FAERS Safety Report 25891615 (Version 2)
Quarter: 2025Q4

REPORT INFORMATION
  Report Type: Spontaneous
  Country: US (occurrence: US)
  Receive Date: 20251007
  Receipt Date: 20251231
  Transmission Date: 20260117
  Serious: No
  Sender: SANOFI AVENTIS
  Company Number: US-SA-2025SA295522

PATIENT
  Age: 71 Year
  Sex: Female

DRUGS (2)
  1. DUPIXENT [Suspect]
     Active Substance: DUPILUMAB
     Indication: Asthma
     Dosage: 600 MG, 1X
     Route: 058
     Dates: start: 20250804, end: 20250804
  2. DUPIXENT [Suspect]
     Active Substance: DUPILUMAB
     Dosage: 300 MG, QOW
     Route: 058
     Dates: start: 20250818

REACTIONS (15)
  - Nausea [Unknown]
  - Vomiting [Unknown]
  - Pyrexia [Unknown]
  - Cough [Unknown]
  - Productive cough [Unknown]
  - Influenza [Recovering/Resolving]
  - Rhinorrhoea [Recovering/Resolving]
  - Headache [Unknown]
  - Dyspnoea [Recovering/Resolving]
  - Asthenia [Recovering/Resolving]
  - Pain [Recovering/Resolving]
  - Nasopharyngitis [Recovering/Resolving]
  - Dizziness [Recovered/Resolved]
  - Oropharyngeal pain [Unknown]
  - Dry eye [Unknown]

NARRATIVE: CASE EVENT DATE: 20250801
